FAERS Safety Report 9689796 (Version 1)
Quarter: 2013Q4

REPORT INFORMATION
  Report Type: Report from Study
  Country: JP (occurrence: JP)
  Receive Date: 20131115
  Receipt Date: 20131115
  Transmission Date: 20140711
  Serious: Yes (Other)
  Sender: FDA-Public Use
  Company Number: JP-AMGEN-JPNCT2013079379

PATIENT
  Age: 42 Year
  Sex: Male
  Weight: 92 kg

DRUGS (9)
  1. DARBEPOETIN ALFA [Suspect]
     Indication: NEPHROGENIC ANAEMIA
     Dosage: 30 MUG, QWK
     Route: 040
     Dates: start: 20110516
  2. BLOPRESS [Concomitant]
     Dosage: UNK
  3. MAINTATE [Concomitant]
     Dosage: UNK
  4. LIVALO [Concomitant]
     Dosage: UNK
  5. BAYASPIRIN [Concomitant]
     Dosage: UNK
  6. LASIX                              /00032601/ [Concomitant]
     Dosage: UNK
  7. ADALAT [Concomitant]
     Dosage: UNK
  8. CONIEL [Concomitant]
     Dosage: UNK
  9. KREMEZIN [Concomitant]
     Dosage: UNK

REACTIONS (4)
  - Iron deficiency anaemia [Recovering/Resolving]
  - Liver disorder [Recovered/Resolved]
  - Renal failure [Not Recovered/Not Resolved]
  - Hyperkalaemia [Recovering/Resolving]
